FAERS Safety Report 6163184-3 (Version None)
Quarter: 2009Q2

REPORT INFORMATION
  Report Type: 
  Country: None (occurrence: None)
  Receive Date: 20090420
  Receipt Date: 20090420
  Transmission Date: 20091009
  Serious: Yes (Life-Threatening, Hospitalization)
  Sender: FDA-Public Use
  Company Number: None

PATIENT
  Age: 62 Year
  Sex: Male

DRUGS (1)
  1. DICLOFENAC SODIUM [Suspect]
     Indication: PAIN
     Dosage: 75 MG BID PO
     Route: 048
     Dates: start: 20081006, end: 20081030

REACTIONS (5)
  - EROSIVE DUODENITIS [None]
  - EROSIVE OESOPHAGITIS [None]
  - GASTRIC HAEMORRHAGE [None]
  - OESOPHAGEAL ULCER [None]
  - UPPER GASTROINTESTINAL HAEMORRHAGE [None]
